FAERS Safety Report 8168214-5 (Version None)
Quarter: 2012Q1

REPORT INFORMATION
  Report Type: 
  Country: None (occurrence: None)
  Receive Date: 20120227
  Receipt Date: 20120217
  Transmission Date: 20120608
  Serious: Yes (Death, Other)
  Sender: FDA-Public Use
  Company Number: JP-PFIZER INC-2011314919

PATIENT
  Age: 74 Year
  Sex: Male
  Weight: 70 kg

DRUGS (5)
  1. CEFTAZIDIME [Concomitant]
     Indication: PNEUMONIA
     Dosage: 2 G/DAY
     Route: 041
     Dates: start: 20101210, end: 20101213
  2. ZOSYN [Suspect]
     Indication: PNEUMONIA
     Dosage: 4.5 G, 3X/DAY
     Route: 041
     Dates: start: 20101207, end: 20101209
  3. CIPROFLOXACIN [Suspect]
     Indication: PNEUMONIA
     Dosage: 600 MG/DAY
     Route: 041
     Dates: start: 20101214, end: 20101215
  4. DIGOXIN [Concomitant]
     Route: 048
  5. PHENYTOIN SODIUM CAP [Concomitant]
     Indication: CONVULSION
     Dosage: 250 MG/DAY
     Route: 041
     Dates: start: 20101203, end: 20101215

REACTIONS (2)
  - RENAL FAILURE ACUTE [None]
  - RHABDOMYOLYSIS [None]
